FAERS Safety Report 8862655 (Version 1)
Quarter: 2012Q4

REPORT INFORMATION
  Report Type: 
  Country: US (occurrence: US)
  Receive Date: 20121026
  Receipt Date: 20121026
  Transmission Date: 20130627
  Serious: Yes (Hospitalization)
  Sender: FDA-Public Use
  Company Number: US-SHIRE-ALL1-2012-05149

PATIENT
  Sex: Female

DRUGS (1)
  1. LIALDA [Suspect]
     Indication: COLITIS
     Dosage: UNK, Unknown
     Route: 048
     Dates: start: 2012, end: 201210

REACTIONS (3)
  - Renal failure [Unknown]
  - Dehydration [Unknown]
  - Diarrhoea [Unknown]
